FAERS Safety Report 19446598 (Version 1)
Quarter: 2021Q2

REPORT INFORMATION
  Report Type: Spontaneous
  Country: US (occurrence: US)
  Receive Date: 20210622
  Receipt Date: 20210622
  Transmission Date: 20210717
  Serious: No
  Sender: FDA-Public Use
  Company Number: US-JNJFOC-20210618015

PATIENT
  Age: 28 Year
  Sex: Female

DRUGS (1)
  1. MENS ROGAINE EXTRA STRENGTH [Suspect]
     Active Substance: MINOXIDIL
     Indication: ALOPECIA
     Dosage: DOSE: AMOUNT REQUIRED
     Route: 065
     Dates: start: 20210430, end: 2021

REACTIONS (3)
  - Off label use [Unknown]
  - Product use issue [Unknown]
  - Application site irritation [Recovering/Resolving]

NARRATIVE: CASE EVENT DATE: 20210430
